FAERS Safety Report 9921171 (Version 1)
Quarter: 2014Q1

REPORT INFORMATION
  Report Type: Spontaneous
  Country: US (occurrence: None)
  Receive Date: 20140221
  Receipt Date: 20140221
  Transmission Date: 20141002
  Serious: Yes (Death, Other)
  Sender: FDA-Public Use
  Company Number: None

PATIENT
  Age: 66 Year
  Sex: Male
  Weight: 75.6 kg

DRUGS (1)
  1. ZANAMIVIR [Suspect]
     Dosage: 600MGIV X 1?250MG BID?1/28 @ 14:43?1/29 @ 02:50?1/29 @ 15:06?1/30 @ 02:04?1/30 @ 16:34
     Route: 042

REACTIONS (5)
  - Hypotension [None]
  - Atrial fibrillation [None]
  - Cardiac valve vegetation [None]
  - Respiratory failure [None]
  - Febrile neutropenia [None]
